FAERS Safety Report 7471659-X (Version None)
Quarter: 2011Q2

REPORT INFORMATION
  Report Type: 
  Country: None (occurrence: None)
  Receive Date: 20110502
  Receipt Date: 20110421
  Transmission Date: 20111010
  Serious: Yes (Death, Hospitalization)
  Sender: FDA-Public Use
  Company Number: 2009003423

PATIENT
  Age: 60 Year
  Sex: Male
  Weight: 82 kg

DRUGS (13)
  1. GEMCITABINE [Concomitant]
     Indication: PANCREATIC CARCINOMA METASTATIC
     Dosage: (1000 MG/M2,Q1W), INTRAVENOUS
     Route: 042
     Dates: start: 20091012, end: 20091116
  2. VASCASE (CILAZAPRIL) [Concomitant]
  3. CIPROFLOXACIN [Concomitant]
  4. ALPRAZOLAM [Concomitant]
  5. ERLOTINIB HYDROCHLORIDE [Suspect]
     Indication: PANCREATIC CARCINOMA METASTATIC
     Dosage: (100 MG,QD),ORAL
     Route: 048
     Dates: start: 20091012, end: 20091119
  6. ESOMEPRAZOLE ( ESOMEPRAZOLE ) [Concomitant]
  7. CODEINE PHOSPHATE (CODEINE PHOSPHATE) [Concomitant]
  8. FENTANYL [Concomitant]
  9. APREPITANT [Concomitant]
  10. ONDANSETRON [Concomitant]
  11. TINZAPARIN SODIUM(HEPARIN-FRACTION, SODIUM SALT) [Concomitant]
  12. CODEINE, PARACETAMOL + CAFFEINE [Concomitant]
  13. HYDROXYZINE [Concomitant]

REACTIONS (16)
  - PLATELET COUNT DECREASED [None]
  - HYPOALBUMINAEMIA [None]
  - LOSS OF CONSCIOUSNESS [None]
  - ASPARTATE AMINOTRANSFERASE INCREASED [None]
  - DEHYDRATION [None]
  - JOINT SWELLING [None]
  - ILEUS [None]
  - NEUTROPENIA [None]
  - PROTEIN TOTAL DECREASED [None]
  - CARDIO-RESPIRATORY ARREST [None]
  - DISEASE PROGRESSION [None]
  - ALANINE AMINOTRANSFERASE INCREASED [None]
  - ANAEMIA [None]
  - PANCREATIC CARCINOMA METASTATIC [None]
  - WHITE BLOOD CELL COUNT DECREASED [None]
  - REFUSAL OF TREATMENT BY PATIENT [None]
